FAERS Safety Report 10920818 (Version 5)
Quarter: 2016Q3

REPORT INFORMATION
  Report Type: Spontaneous
  Country: JP (occurrence: JP)
  Receive Date: 20150317
  Receipt Date: 20160728
  Transmission Date: 20161109
  Serious: Yes (Other)
  Sender: FDA-Public Use
  Company Number: JP-ASTELLAS-2015US008495

PATIENT
  Age: 62 Year
  Sex: Male

DRUGS (5)
  1. BIOFERMIN T [Concomitant]
     Indication: PRODUCT USED FOR UNKNOWN INDICATION
     Route: 048
  2. ERLOTINIB [Suspect]
     Active Substance: ERLOTINIB
     Route: 048
     Dates: start: 201305, end: 201407
  3. ERLOTINIB [Suspect]
     Active Substance: ERLOTINIB
     Dosage: 100 MG, 1 IN 4 DAYS
     Route: 048
     Dates: start: 201407
  4. LOPEMIN                            /00384302/ [Concomitant]
     Active Substance: LOPERAMIDE HYDROCHLORIDE
     Indication: PRODUCT USED FOR UNKNOWN INDICATION
     Route: 048
  5. ERLOTINIB [Suspect]
     Active Substance: ERLOTINIB
     Indication: LUNG ADENOCARCINOMA
     Dosage: 150 MG, 1 IN 4 DAYS
     Route: 048
     Dates: start: 201103, end: 201305

REACTIONS (1)
  - Retinopathy [Recovering/Resolving]

NARRATIVE: CASE EVENT DATE: 201305
